FAERS Safety Report 15151422 (Version 1)
Quarter: 2018Q3

REPORT INFORMATION
  Report Type: Report from Study
  Country: US (occurrence: US)
  Receive Date: 20180716
  Receipt Date: 20180716
  Transmission Date: 20181010
  Serious: Yes (Hospitalization)
  Sender: FDA-Public Use
  Company Number: US-ACTELION-A-NJ2018-171777

PATIENT
  Age: 54 Year
  Sex: Female
  Weight: 99.32 kg

DRUGS (4)
  1. OPSUMIT [Concomitant]
     Active Substance: MACITENTAN
     Route: 048
  2. VELETRI [Suspect]
     Active Substance: EPOPROSTENOL
     Dosage: 25.5 UNK, UNK
     Route: 042
  3. VELETRI [Suspect]
     Active Substance: EPOPROSTENOL
     Dosage: 19.5 NG/KG, PER MIN
     Route: 042
  4. VELETRI [Suspect]
     Active Substance: EPOPROSTENOL
     Indication: PULMONARY ARTERIAL HYPERTENSION
     Dosage: 15.5 NG/KG, PER MIN
     Route: 042

REACTIONS (9)
  - Nausea [Unknown]
  - Pain in jaw [Unknown]
  - Hospitalisation [Unknown]
  - Flushing [Unknown]
  - Erythema [Unknown]
  - Dyspnoea exertional [Unknown]
  - Dehydration [Unknown]
  - Decreased appetite [Unknown]
  - Rash [Unknown]
